FAERS Safety Report 17406327 (Version 1)
Quarter: 2020Q1

REPORT INFORMATION
  Report Type: Spontaneous
  Country: US (occurrence: US)
  Receive Date: 20200211
  Receipt Date: 20200211
  Transmission Date: 20200409
  Serious: Yes (Disabling)
  Sender: FDA-Public Use
  Company Number: None

PATIENT
  Age: 50 Year
  Sex: Female
  Weight: 54.45 kg

DRUGS (5)
  1. CIPRO [Suspect]
     Active Substance: CIPROFLOXACIN HYDROCHLORIDE
     Indication: DIVERTICULITIS
     Dates: start: 20190829, end: 20190903
  2. PROBIOTICS [Concomitant]
     Active Substance: PROBIOTICS NOS
  3. SERTRALINE [Concomitant]
     Active Substance: SERTRALINE HYDROCHLORIDE
  4. BUPROPION. [Concomitant]
     Active Substance: BUPROPION
  5. PROFEMIN [Concomitant]

REACTIONS (17)
  - Feeling abnormal [None]
  - Aphasia [None]
  - Feeding disorder [None]
  - Weight decreased [None]
  - Fatigue [None]
  - Abdominal pain [None]
  - Gastric disorder [None]
  - Muscular weakness [None]
  - Speech disorder [None]
  - Nausea [None]
  - Loss of personal independence in daily activities [None]
  - Joint injury [None]
  - Fall [None]
  - Dizziness [None]
  - Gait disturbance [None]
  - Irritable bowel syndrome [None]
  - Asthenia [None]

NARRATIVE: CASE EVENT DATE: 20190829
